FAERS Safety Report 21968259 (Version 1)
Quarter: 2023Q1

REPORT INFORMATION
  Report Type: Spontaneous
  Country: CH (occurrence: CH)
  Receive Date: 20230208
  Receipt Date: 20230208
  Transmission Date: 20230417
  Serious: Yes (Hospitalization, Other)
  Sender: FDA-Public Use
  Company Number: None

PATIENT
  Age: 54 Year
  Sex: Female

DRUGS (5)
  1. KEYTRUDA [Suspect]
     Active Substance: PEMBROLIZUMAB
     Indication: Oesophageal adenocarcinoma stage IV
     Dosage: 200 MILLIGRAM, 1X/3 WEEKS (Q3W)
     Route: 042
     Dates: start: 20210422, end: 20221227
  2. TARGOCID [Suspect]
     Active Substance: TEICOPLANIN
     Indication: Staphylococcal infection
     Dosage: 400 MILLIGRAM /24H (QD)
     Route: 041
     Dates: start: 20221229, end: 20230108
  3. VANCOMYCIN [Suspect]
     Active Substance: VANCOMYCIN
     Indication: Staphylococcal infection
     Dosage: LOCK 5 MG/ML
     Route: 042
     Dates: start: 20221229, end: 20230108
  4. APIXABAN [Concomitant]
     Active Substance: APIXABAN
     Dosage: 5 MILLIGRAM, EVERY 12 HOURS (ALSO REPORTED AS 2X/DAY)
     Route: 048
  5. ESOMEPRAZOLE [Concomitant]
     Active Substance: ESOMEPRAZOLE
     Dosage: 40 MILLIGRAM, 1X/DAY (QD)
     Route: 048

REACTIONS (3)
  - Rash [Recovering/Resolving]
  - Feeling hot [Recovering/Resolving]
  - Pyrexia [Recovering/Resolving]

NARRATIVE: CASE EVENT DATE: 20230106
